FAERS Safety Report 5643848-8 (Version None)
Quarter: 2008Q1

REPORT INFORMATION
  Report Type: 
  Country: None (occurrence: None)
  Receive Date: 20080131
  Receipt Date: 20071023
  Transmission Date: 20080703
  Serious: Yes (Disabling)
  Sender: FDA-Public Use
  Company Number: 163-21880-07100614

PATIENT
  Age: 86 Year
  Sex: Female

DRUGS (14)
  1. REVLIMID [Suspect]
     Indication: MYELODYSPLASTIC SYNDROME
     Dosage: 10 MG, 1 IN 1 D, ORAL
     Route: 048
     Dates: start: 20070110, end: 20070330
  2. FLAXSEED OIL (LINSEED OIL) [Concomitant]
  3. CENTRUM SILVER (CENTRUM SILVER) [Concomitant]
  4. COUMADIN [Concomitant]
  5. ASPIRIN [Concomitant]
  6. SYNTHROID [Concomitant]
  7. SPIRONOLACTONE [Concomitant]
  8. PRILOSEC [Concomitant]
  9. COREG [Concomitant]
  10. COLCHICINE (COLCHICINE) [Concomitant]
  11. FOLIC ACID [Concomitant]
  12. DIGOXIN [Concomitant]
  13. VYTORIN [Concomitant]
  14. AREDIA [Concomitant]

REACTIONS (6)
  - ARTHRALGIA [None]
  - BLOOD CREATININE INCREASED [None]
  - GAIT DISTURBANCE [None]
  - HAEMOGLOBIN DECREASED [None]
  - JOINT STIFFNESS [None]
  - OEDEMA PERIPHERAL [None]
